FAERS Safety Report 23448211 (Version 4)
Quarter: 2025Q2

REPORT INFORMATION
  Report Type: Report from Study
  Country: FR (occurrence: FR)
  Receive Date: 20240126
  Receipt Date: 20250624
  Transmission Date: 20250717
  Serious: Yes (Hospitalization)
  Sender: ABBVIE
  Company Number: FR-ABBVIE-5601226

PATIENT
  Age: 42 Year
  Sex: Female
  Weight: 47 kg

DRUGS (5)
  1. UPADACITINIB [Suspect]
     Active Substance: UPADACITINIB
     Indication: Psoriatic arthropathy
     Route: 048
     Dates: start: 202401, end: 20240118
  2. UPADACITINIB [Suspect]
     Active Substance: UPADACITINIB
     Indication: Psoriatic arthropathy
     Route: 048
     Dates: start: 20231126, end: 202312
  3. UPADACITINIB [Suspect]
     Active Substance: UPADACITINIB
     Indication: Psoriatic arthropathy
     Route: 048
     Dates: start: 20231030, end: 20231120
  4. METHOTREXATE [Concomitant]
     Active Substance: METHOTREXATE
     Indication: Psoriatic arthropathy
     Route: 058
     Dates: start: 202304
  5. DOLIPRANE [Concomitant]
     Active Substance: ACETAMINOPHEN
     Indication: Product used for unknown indication
     Dates: start: 2021

REACTIONS (2)
  - Mucinous adenocarcinoma of appendix [Recovered/Resolved]
  - COVID-19 [Recovered/Resolved]

NARRATIVE: CASE EVENT DATE: 20231123
